FAERS Safety Report 7408471-3 (Version None)
Quarter: 2011Q2

REPORT INFORMATION
  Report Type: 
  Country: None (occurrence: None)
  Receive Date: 20110412
  Receipt Date: 20110218
  Transmission Date: 20111010
  Serious: Yes (Other)
  Sender: FDA-Public Use
  Company Number: US-BAYER-200924396NA

PATIENT
  Sex: Male

DRUGS (16)
  1. TRASYLOL [Suspect]
     Indication: CORONARY ARTERY BYPASS
     Dosage: 200CC
     Route: 042
     Dates: start: 20060831, end: 20060831
  2. BENADRYL ALLERGY [DIPHENHYDRAMINE HYDROCHLORIDE] [Concomitant]
     Route: 048
  3. SUCCINYLCHOLINE CHLORIDE [Concomitant]
     Dosage: UNK
     Route: 042
     Dates: start: 20060831
  4. HEPARIN [Concomitant]
     Dosage: UNK
     Route: 042
     Dates: start: 20060831
  5. CLONOPIN [Concomitant]
     Route: 048
  6. PANCURONIUM BROMIDE [Concomitant]
     Dosage: UNK
     Route: 042
     Dates: start: 20060831
  7. NITROGLYCERIN [Concomitant]
     Route: 048
  8. ACETYLSALICYLIC ACID SRT [Concomitant]
     Route: 048
  9. VERSED [Concomitant]
     Dosage: UNK
     Route: 042
     Dates: start: 20060831
  10. TRASYLOL [Suspect]
     Dosage: 50CC/HR, INFUSION
     Route: 042
     Dates: start: 20060831, end: 20060831
  11. VANCOMYCIN [Concomitant]
     Route: 048
  12. REGLAN [Concomitant]
     Route: 048
  13. PROTAMINE SULFATE [Concomitant]
     Route: 048
  14. PEPCID [Concomitant]
     Route: 048
  15. FENTANYL [Concomitant]
     Dosage: UNK
     Route: 042
     Dates: start: 20060831
  16. TOPROL-XL [Concomitant]
     Dosage: 50 MG, UNK
     Route: 048

REACTIONS (11)
  - FEAR [None]
  - RENAL IMPAIRMENT [None]
  - RENAL INJURY [None]
  - EMOTIONAL DISTRESS [None]
  - ANHEDONIA [None]
  - ANXIETY [None]
  - RENAL FAILURE [None]
  - INJURY [None]
  - STRESS [None]
  - UNEVALUABLE EVENT [None]
  - PAIN [None]
